FAERS Safety Report 24617320 (Version 1)
Quarter: 2024Q4

REPORT INFORMATION
  Report Type: Spontaneous
  Country: FR (occurrence: FR)
  Receive Date: 20241114
  Receipt Date: 20241114
  Transmission Date: 20250114
  Serious: Yes (Hospitalization, Other)
  Sender: MERCK KGAA
  Company Number: FR-Merck Healthcare KGaA-2024059080

PATIENT
  Sex: Female

DRUGS (2)
  1. LEVOTHYROXINE [Suspect]
     Active Substance: LEVOTHYROXINE
     Indication: Post procedural hypothyroidism
     Dosage: 125 (UNIT UNSPECIFIED)
  2. LEVOTHYROXINE [Suspect]
     Active Substance: LEVOTHYROXINE
     Indication: Post procedural hypothyroidism

REACTIONS (3)
  - Exophthalmos [Unknown]
  - Graves^ disease [Unknown]
  - Thyrotoxic crisis [Unknown]

NARRATIVE: CASE EVENT DATE: 20120701
